FAERS Safety Report 4618359-9 (Version None)
Quarter: 2005Q1

REPORT INFORMATION
  Report Type: 
  Country: None (occurrence: None)
  Receive Date: 20050323
  Receipt Date: 20050316
  Transmission Date: 20050727
  Serious: Yes (Other)
  Sender: FDA-Public Use
  Company Number: 2005-03-1163

PATIENT
  Age: 36 Year
  Sex: Female

DRUGS (2)
  1. CLARITIN REDITABS [Suspect]
     Indication: RHINITIS ALLERGIC
     Dosage: 10 MG ORAL
     Route: 048
     Dates: start: 20040309, end: 20040312
  2. ALLEGRA [Concomitant]

REACTIONS (4)
  - DECREASED APPETITE [None]
  - DIARRHOEA [None]
  - LISTLESS [None]
  - VOMITING [None]
